FAERS Safety Report 9206266 (Version 1)
Quarter: 2013Q2

REPORT INFORMATION
  Report Type: Spontaneous
  Country: US (occurrence: US)
  Receive Date: 20130403
  Receipt Date: 20130403
  Transmission Date: 20140414
  Serious: No
  Sender: FDA-Public Use
  Company Number: US-PFIZER INC-2013101773

PATIENT
  Sex: Female

DRUGS (1)
  1. ADVIL ALLERGY AND CONGESTION RELIEF [Suspect]
     Indication: RESPIRATORY TRACT CONGESTION
     Dosage: UNK

REACTIONS (2)
  - Dyspnoea [Unknown]
  - Drug ineffective [Unknown]
